FAERS Safety Report 20962601 (Version 1)
Quarter: 2022Q2

REPORT INFORMATION
  Report Type: Spontaneous
  Country: US (occurrence: US)
  Receive Date: 20220615
  Receipt Date: 20220615
  Transmission Date: 20220720
  Serious: No
  Sender: FDA-Public Use
  Company Number: US-GALDERMA-US2021012517

PATIENT

DRUGS (6)
  1. ORACEA [Suspect]
     Active Substance: DOXYCYCLINE
     Indication: Rosacea
     Dosage: 1 DOSAGE FORM, QD, ONCE EVERY MORNING
     Route: 061
     Dates: start: 1994
  2. ORACEA [Suspect]
     Active Substance: DOXYCYCLINE
     Dosage: 1 DOSAGE FORM, QD, ONCE IN THE MORNING
     Route: 061
     Dates: start: 202105
  3. LEVOTHYROXINE [Concomitant]
     Active Substance: LEVOTHYROXINE
     Indication: Thyroid disorder
     Dosage: UNK
     Route: 065
  4. CITALOPRAM [Concomitant]
     Active Substance: CITALOPRAM HYDROBROMIDE
     Indication: Depression
     Dosage: UNK
     Route: 065
  5. CETIRIZINE [Concomitant]
     Active Substance: CETIRIZINE HYDROCHLORIDE
     Indication: Product used for unknown indication
     Dosage: UNK
     Route: 065
  6. ACYCLOVIR [Concomitant]
     Active Substance: ACYCLOVIR
     Indication: Product used for unknown indication
     Route: 065

REACTIONS (2)
  - Therapeutic response unexpected [Recovered/Resolved]
  - Expired product administered [Recovered/Resolved]
